FAERS Safety Report 17886458 (Version 1)
Quarter: 2020Q2

REPORT INFORMATION
  Report Type: Spontaneous
  Country: GB (occurrence: GB)
  Receive Date: 20200611
  Receipt Date: 20200611
  Transmission Date: 20200714
  Serious: Yes (Hospitalization, Other)
  Sender: FDA-Public Use
  Company Number: GB-BRISTOL-MYERS SQUIBB COMPANY-BMS-2020-044522

PATIENT
  Sex: Male
  Weight: 65 kg

DRUGS (4)
  1. AMOXICLAV [Concomitant]
     Active Substance: AMOXICILLIN\CLAVULANATE POTASSIUM
     Indication: LOWER RESPIRATORY TRACT INFECTION
     Dosage: UNK
     Route: 065
  2. TAMSULOSIN [Concomitant]
     Active Substance: TAMSULOSIN
     Indication: BLADDER DISORDER
     Dosage: UNK
     Route: 065
  3. CLOPIDOGREL [CLOPIDOGREL BISULFATE] [Concomitant]
     Active Substance: CLOPIDOGREL BISULFATE
     Indication: PRODUCT USED FOR UNKNOWN INDICATION
     Dosage: UNK
     Route: 065
  4. APIXABAN [Suspect]
     Active Substance: APIXABAN
     Indication: PRODUCT USED FOR UNKNOWN INDICATION
     Dosage: 5 MILLIGRAM, BID
     Route: 065
     Dates: start: 20200601

REACTIONS (14)
  - Pericardial effusion [Unknown]
  - Appetite disorder [Unknown]
  - Angina pectoris [Unknown]
  - Cough [Unknown]
  - Nausea [Recovered/Resolved]
  - Adverse event [Unknown]
  - Lower respiratory tract infection [Unknown]
  - Osteoarthritis [Unknown]
  - Spinal stenosis [Unknown]
  - Chest pain [Unknown]
  - Atrial flutter [Unknown]
  - Chest discomfort [Recovered/Resolved]
  - Dyspnoea [Unknown]
  - Weight decreased [Unknown]
